FAERS Safety Report 6109448-0 (Version None)
Quarter: 2009Q1

REPORT INFORMATION
  Report Type: 
  Country: None (occurrence: None)
  Receive Date: 20090310
  Receipt Date: 20090226
  Transmission Date: 20090719
  Serious: Yes (Other)
  Sender: FDA-Public Use
  Company Number: BR-ELI_LILLY_AND_COMPANY-BR200902007577

PATIENT
  Sex: Female
  Weight: 68 kg

DRUGS (3)
  1. CYMBALTA [Suspect]
     Dosage: 60 MG, EACH MORNING
     Route: 048
     Dates: start: 20090201, end: 20090221
  2. CLONAZEPAM [Concomitant]
     Dosage: 2 MG, EACH EVENING
     Route: 065
  3. ARADOIS [Concomitant]
     Dosage: UNK, EACH MORNING
     Route: 065

REACTIONS (4)
  - ANOREXIA [None]
  - BEDRIDDEN [None]
  - DRUG WITHDRAWAL SYNDROME [None]
  - SYNCOPE [None]
